FAERS Safety Report 9624566 (Version 3)
Quarter: 2013Q4

REPORT INFORMATION
  Report Type: Spontaneous
  Country: US (occurrence: US)
  Receive Date: 20131015
  Receipt Date: 20131216
  Transmission Date: 20140711
  Serious: Yes (Death)
  Sender: FDA-Public Use
  Company Number: US-BRISTOL-MYERS SQUIBB COMPANY-19508928

PATIENT
  Age: 63 Year
  Sex: Female

DRUGS (11)
  1. ABATACEPT SUBQ INJECTION 125MG/ML [Suspect]
     Route: 058
  2. PLAQUENIL [Suspect]
  3. PREDNISONE [Suspect]
  4. CITALOPRAM [Concomitant]
  5. LISINOPRIL [Concomitant]
  6. METFORMIN HCL [Concomitant]
  7. INSULIN [Concomitant]
  8. GABAPENTIN [Concomitant]
  9. METOPROLOL [Concomitant]
  10. OMEPRAZOLE [Concomitant]
  11. MAGNESIUM [Concomitant]

REACTIONS (5)
  - Death [Fatal]
  - Pain in extremity [Unknown]
  - Swelling [Unknown]
  - Rheumatoid nodule [Unknown]
  - Cushingoid [Unknown]
